FAERS Safety Report 4693406-7 (Version None)
Quarter: 2005Q2

REPORT INFORMATION
  Report Type: 
  Country: None (occurrence: None)
  Receive Date: 20050615
  Receipt Date: 20050603
  Transmission Date: 20051028
  Serious: Yes (Other)
  Sender: FDA-Public Use
  Company Number: 2005076009

PATIENT
  Age: 67 Year
  Sex: Female
  Weight: 68.0396 kg

DRUGS (7)
  1. BEXTRA [Suspect]
     Indication: PAIN
     Dosage: 20 MG (20 MG, 1 IN 1 D), ORAL
     Route: 048
     Dates: start: 20041001, end: 20050407
  2. ULTRAM [Suspect]
     Indication: PAIN
     Dosage: 50 MG, ORAL
     Route: 048
     Dates: start: 20050101, end: 20050101
  3. DARVOCET-N 100 [Suspect]
     Indication: PAIN
     Dosage: ORAL
     Route: 048
     Dates: start: 20050101, end: 20050101
  4. DURAGESIC (FENTANYL) [Suspect]
     Indication: PAIN
     Dosage: 50 MCG (50 MCG), TOPICAL
     Route: 061
     Dates: start: 20050510, end: 20050510
  5. METOPROLOL TARTRATE [Concomitant]
  6. MAVIK [Concomitant]
  7. DILTIAZEM [Concomitant]

REACTIONS (7)
  - BLOOD PRESSURE INCREASED [None]
  - CHILLS [None]
  - COLD SWEAT [None]
  - COMA [None]
  - NAUSEA [None]
  - PARALYSIS [None]
  - VOMITING [None]
